FAERS Safety Report 14720910 (Version 3)
Quarter: 2018Q2

REPORT INFORMATION
  Report Type: Spontaneous
  Country: ES (occurrence: ES)
  Receive Date: 20180405
  Receipt Date: 20180508
  Transmission Date: 20180711
  Serious: Yes (Congenital Anomaly, Other)
  Sender: FDA-Public Use
  Company Number: ES-ABBVIE-18S-144-2309307-00

PATIENT
  Sex: Male

DRUGS (2)
  1. CALCINATAL [Concomitant]
     Indication: PRODUCT USED FOR UNKNOWN INDICATION
     Route: 064
  2. DEPAKINE CRONO [Suspect]
     Active Substance: VALPROIC ACID
     Indication: MATERNAL EXPOSURE TIMING UNSPECIFIED
     Route: 064

REACTIONS (6)
  - Foetal exposure during pregnancy [Unknown]
  - Foetal anticonvulsant syndrome [Not Recovered/Not Resolved]
  - High arched palate [Unknown]
  - Autism spectrum disorder [Unknown]
  - Congenital scoliosis [Unknown]
  - Hypertelorism of orbit [Unknown]
